FAERS Safety Report 19712336 (Version 9)
Quarter: 2021Q4

REPORT INFORMATION
  Report Type: Spontaneous
  Country: CZ (occurrence: CZ)
  Receive Date: 20210817
  Receipt Date: 20211112
  Transmission Date: 20220303
  Serious: Yes (Hospitalization, Other)
  Sender: FDA-Public Use
  Company Number: NVSC2021CZ156898

PATIENT
  Age: 63 Year
  Sex: Female

DRUGS (19)
  1. ESCITALOPRAM [Suspect]
     Active Substance: ESCITALOPRAM OXALATE
     Indication: Depression
     Dosage: 10 MG, Q24H
     Route: 065
  2. ESCITALOPRAM [Suspect]
     Active Substance: ESCITALOPRAM OXALATE
     Indication: Multimorbidity
     Dosage: 10 MILLIGRAM
     Route: 065
  3. ESCITALOPRAM [Suspect]
     Active Substance: ESCITALOPRAM OXALATE
     Indication: Attention deficit hyperactivity disorder
  4. ARIPIPRAZOLE [Suspect]
     Active Substance: ARIPIPRAZOLE
     Indication: Attention deficit hyperactivity disorder
     Dosage: 15 MG, QD
     Route: 048
  5. ARIPIPRAZOLE [Suspect]
     Active Substance: ARIPIPRAZOLE
     Indication: Multimorbidity
  6. ARIPIPRAZOLE [Suspect]
     Active Substance: ARIPIPRAZOLE
     Indication: Psychotic disorder
  7. ARIPIPRAZOLE [Suspect]
     Active Substance: ARIPIPRAZOLE
     Indication: Psychotic symptom
  8. OLANZAPINE [Suspect]
     Active Substance: OLANZAPINE
     Indication: Attention deficit hyperactivity disorder
     Dosage: 20 MG
     Route: 065
  9. OLANZAPINE [Suspect]
     Active Substance: OLANZAPINE
     Indication: Multimorbidity
  10. OLANZAPINE [Suspect]
     Active Substance: OLANZAPINE
     Indication: Delusion
  11. OLANZAPINE [Suspect]
     Active Substance: OLANZAPINE
     Indication: Hallucination, auditory
  12. OLANZAPINE [Suspect]
     Active Substance: OLANZAPINE
     Indication: Psychomotor hyperactivity
  13. OLANZAPINE [Suspect]
     Active Substance: OLANZAPINE
     Indication: Dysphoria
  14. PREGABALIN [Suspect]
     Active Substance: PREGABALIN
     Indication: Prophylaxis
     Dosage: 150 MG, QD
     Route: 065
  15. PREGABALIN [Suspect]
     Active Substance: PREGABALIN
     Indication: Psychotic disorder
  16. QUETIAPINE FUMARATE [Suspect]
     Active Substance: QUETIAPINE FUMARATE
     Indication: Attention deficit hyperactivity disorder
     Dosage: 400 MG, QUETIAPINE PROLONG
     Route: 065
  17. QUETIAPINE FUMARATE [Suspect]
     Active Substance: QUETIAPINE FUMARATE
     Indication: Multimorbidity
  18. AGOMELATINE [Suspect]
     Active Substance: AGOMELATINE
     Indication: Affective disorder
     Dosage: 25-50 MG, UNKNOWN
     Route: 065
  19. AGOMELATINE [Suspect]
     Active Substance: AGOMELATINE
     Indication: Depression

REACTIONS (21)
  - Delusion [Recovered/Resolved]
  - Behaviour disorder [Recovered/Resolved]
  - Hallucination, auditory [Recovered/Resolved]
  - Psychiatric decompensation [Recovered/Resolved]
  - Drug ineffective [Unknown]
  - Central obesity [Recovering/Resolving]
  - Type 2 diabetes mellitus [Recovering/Resolving]
  - Accelerated hypertension [Recovered/Resolved]
  - Therapeutic product effect incomplete [Unknown]
  - Irritability [Recovered/Resolved]
  - Asthenia [Recovered/Resolved]
  - Schizoaffective disorder [Unknown]
  - Sleep deficit [Recovered/Resolved]
  - Dysphoria [Recovered/Resolved]
  - Euphoric mood [Recovered/Resolved]
  - Akathisia [Recovered/Resolved]
  - Weight increased [Recovering/Resolving]
  - Somnolence [Recovered/Resolved]
  - Sedation [Unknown]
  - Depression [Recovering/Resolving]
  - Psychotic disorder [Recovered/Resolved]
